FAERS Safety Report 12728701 (Version 1)
Quarter: 2016Q3

REPORT INFORMATION
  Report Type: Spontaneous
  Country: DE (occurrence: DE)
  Receive Date: 20160909
  Receipt Date: 20160909
  Transmission Date: 20161109
  Serious: Yes (Congenital Anomaly, Other)
  Sender: FDA-Public Use
  Company Number: GXKR2016DE004158

PATIENT

DRUGS (3)
  1. L-THYROXINE//LEVOTHYROXINE [Concomitant]
     Indication: HYPOTHYROIDISM
     Dosage: 50 [?G/D ]
     Route: 064
     Dates: start: 20150724, end: 20160429
  2. FOLIC ACID. [Concomitant]
     Active Substance: FOLIC ACID
     Indication: PROPHYLAXIS OF NEURAL TUBE DEFECT
     Route: 064
     Dates: start: 20150724, end: 20160429
  3. METOPROLOL. [Suspect]
     Active Substance: METOPROLOL
     Indication: HYPERTENSION
     Dosage: 95 MG, QD
     Route: 064
     Dates: start: 20150724, end: 20160429

REACTIONS (3)
  - Microcephaly [Recovering/Resolving]
  - Hypertonia neonatal [Unknown]
  - Small for dates baby [Unknown]

NARRATIVE: CASE EVENT DATE: 20160429
